FAERS Safety Report 7706245-7 (Version None)
Quarter: 2011Q3

REPORT INFORMATION
  Report Type: 
  Country: None (occurrence: None)
  Receive Date: 20110824
  Receipt Date: 20110817
  Transmission Date: 20111222
  Serious: Yes (Hospitalization, Other)
  Sender: FDA-Public Use
  Company Number: JP-ROCHE-726482

PATIENT
  Sex: Female

DRUGS (74)
  1. PREDNISOLONE [Suspect]
     Route: 041
     Dates: start: 20100718, end: 20100721
  2. PREDNISOLONE [Suspect]
     Route: 041
     Dates: start: 20100724, end: 20100805
  3. BACTRIM [Concomitant]
     Route: 048
     Dates: start: 20100726
  4. LEVOFLOXACIN [Concomitant]
     Route: 048
     Dates: start: 20100806, end: 20100806
  5. LEVOFLOXACIN [Concomitant]
     Route: 048
     Dates: start: 20100808, end: 20100808
  6. RISPERDAL [Concomitant]
     Dates: start: 20100910
  7. RISPERDAL [Concomitant]
     Dates: start: 20100913, end: 20100920
  8. POTASSIUM L-ASPARTATE [Concomitant]
     Dosage: DOSE: 10MEQ
     Route: 042
     Dates: start: 20100823, end: 20100829
  9. BUFFERIN [Concomitant]
     Route: 048
     Dates: start: 20101204
  10. TOCILIZUMAB [Suspect]
     Route: 041
     Dates: start: 20101104, end: 20101104
  11. PREDNISOLONE [Suspect]
     Route: 048
     Dates: start: 20100910, end: 20101007
  12. PREDNISOLONE [Suspect]
     Route: 041
     Dates: start: 20100811, end: 20100817
  13. ALBUMINAR [Concomitant]
     Dosage: ROUTE: INTRAVENOUS (NOT OTHERWISE SPECIFIED)
     Route: 042
     Dates: start: 20100715, end: 20100718
  14. ALBUMINAR [Concomitant]
     Route: 042
     Dates: start: 20100720, end: 20100720
  15. ALBUMIN TANNATE [Concomitant]
     Route: 048
     Dates: start: 20100806, end: 20100909
  16. LASIX [Concomitant]
     Route: 042
     Dates: start: 20100813, end: 20100819
  17. LENDORMIN [Concomitant]
     Route: 048
     Dates: start: 20100819, end: 20100826
  18. MAGMITT [Concomitant]
     Route: 048
     Dates: start: 20100921
  19. HEPARIN SODIUM [Concomitant]
     Route: 042
     Dates: start: 20100903, end: 20100906
  20. POTASSIUM L-ASPARTATE [Concomitant]
     Dosage: DOSE: 20MEQ
     Route: 042
     Dates: start: 20100830, end: 20100916
  21. TOCILIZUMAB [Suspect]
     Indication: CASTLEMAN'S DISEASE
     Route: 041
     Dates: start: 20100727, end: 20100914
  22. ALLOPURINOL [Concomitant]
     Route: 048
     Dates: start: 20100714
  23. ALBUMINAR [Concomitant]
     Route: 042
     Dates: start: 20100920, end: 20100920
  24. LORAZEPAM [Concomitant]
     Route: 048
     Dates: start: 20100812
  25. LENDORMIN [Concomitant]
     Route: 048
     Dates: start: 20100828, end: 20100901
  26. RISPERDAL [Concomitant]
     Dates: start: 20100921, end: 20100922
  27. ACYCLOVIR [Concomitant]
     Route: 048
     Dates: start: 20100910
  28. ALDACTONE [Concomitant]
     Dosage: DOSE FORM: PERORAL AGENT
     Route: 054
     Dates: start: 20101005
  29. TOCILIZUMAB [Suspect]
     Route: 041
     Dates: start: 20101117
  30. PREDNISOLONE [Suspect]
     Route: 048
     Dates: start: 20100824, end: 20100902
  31. PREDNISOLONE [Suspect]
     Route: 041
     Dates: start: 20100818, end: 20100824
  32. METHYLPREDNISOLONE SODIUM SUCCINATE [Suspect]
     Indication: CASTLEMAN'S DISEASE
     Dosage: ROUTE IV(NOS)
     Route: 042
     Dates: start: 20100721, end: 20100723
  33. KALIMATE [Concomitant]
     Dosage: DOSE FORM REPORTED AS PERORAL AGENT
     Route: 048
     Dates: start: 20100714, end: 20100805
  34. ALBUMINAR [Concomitant]
     Route: 042
     Dates: start: 20100722, end: 20100724
  35. LAXOBERON [Concomitant]
     Dosage: DOSE FORM REPORTED AS PERORAL LIQUID PREPARATION
     Route: 048
     Dates: start: 20100801, end: 20100802
  36. LEVOFLOXACIN [Concomitant]
     Route: 048
     Dates: start: 20100810, end: 20100815
  37. LASIX [Concomitant]
     Route: 042
     Dates: start: 20100806, end: 20100811
  38. RISPERDAL [Concomitant]
     Dates: start: 20100903, end: 20100909
  39. POSTERISAN [Concomitant]
     Dosage: PROPER QUANTI
     Route: 061
     Dates: start: 20100629
  40. HEPARIN SODIUM [Concomitant]
     Route: 042
     Dates: start: 20100821, end: 20100901
  41. HEPARIN SODIUM [Concomitant]
     Route: 042
     Dates: start: 20100907, end: 20100907
  42. TOCILIZUMAB [Suspect]
     Route: 041
     Dates: start: 20100922, end: 20101020
  43. PREDNISOLONE [Suspect]
     Indication: CASTLEMAN'S DISEASE
     Route: 048
     Dates: start: 20100713, end: 20100722
  44. PREDNISOLONE [Suspect]
     Route: 048
     Dates: start: 20100903, end: 20100909
  45. MORPHINE [Concomitant]
     Dosage: DOSE FORM REPORTED AS PERORAL LIQUID PREPARATION
     Route: 048
     Dates: start: 20100716
  46. TIMOPTOL [Concomitant]
     Dosage: DOSING AMOUNT REPORTED AS 1GTT, FORM: EYE DROPS
     Route: 047
     Dates: start: 20100629
  47. ALBUMINAR [Concomitant]
     Route: 042
     Dates: start: 20100726, end: 20100726
  48. LASIX [Concomitant]
     Route: 042
     Dates: start: 20100831, end: 20100907
  49. RISPERDAL [Concomitant]
     Dates: start: 20100923, end: 20101111
  50. PYRINAZIN [Concomitant]
     Route: 048
     Dates: start: 20101016
  51. HEPARIN SODIUM [Concomitant]
     Route: 042
     Dates: start: 20100815, end: 20100815
  52. PREDNISOLONE [Suspect]
     Route: 041
     Dates: start: 20100806, end: 20100810
  53. RABEPRAZOLE SODIUM [Concomitant]
     Route: 048
     Dates: start: 20100707
  54. LASIX [Concomitant]
     Route: 042
     Dates: start: 20100921, end: 20101001
  55. LENDORMIN [Concomitant]
     Route: 048
     Dates: start: 20100902, end: 20100903
  56. RISPERDAL [Concomitant]
     Dates: start: 20100902, end: 20100902
  57. LASIX [Concomitant]
     Route: 048
     Dates: start: 20100705, end: 20100722
  58. PROCHLORPERAZINE [Concomitant]
     Route: 048
     Dates: start: 20101016
  59. FENTANYL [Concomitant]
     Dosage: DOSE FORM: TAPE, 2.1MG24.2MG
     Route: 062
     Dates: start: 20101010
  60. ALBUMINAR [Concomitant]
     Route: 042
     Dates: start: 20100929, end: 20100929
  61. LASIX [Concomitant]
     Route: 042
     Dates: start: 20100812, end: 20100812
  62. LASIX [Concomitant]
     Route: 042
     Dates: start: 20100919, end: 20100919
  63. PYRINAZIN [Concomitant]
     Route: 048
     Dates: start: 20101008, end: 20101016
  64. HEPARIN SODIUM [Concomitant]
     Route: 042
     Dates: start: 20100717, end: 20100810
  65. HEPARIN SODIUM [Concomitant]
     Route: 042
     Dates: start: 20100908, end: 20100908
  66. PREDNISOLONE [Suspect]
     Route: 048
     Dates: start: 20101008
  67. FLUCONAZOLE [Concomitant]
     Route: 048
     Dates: start: 20100713
  68. BACTRIM [Concomitant]
     Route: 048
     Dates: start: 20100713, end: 20100723
  69. LASIX [Concomitant]
     Dosage: ROUTE: IV(NOS)
     Route: 042
     Dates: start: 20100805, end: 20100805
  70. LASIX [Concomitant]
     Route: 042
     Dates: start: 20100908, end: 20100913
  71. LENDORMIN [Concomitant]
     Route: 048
     Dates: start: 20100904
  72. LASIX [Concomitant]
     Route: 048
     Dates: start: 20101005, end: 20101104
  73. ATARAX [Concomitant]
     Route: 040
     Dates: start: 20100816, end: 20100819
  74. VALGANCICLOVIR [Concomitant]
     Route: 048
     Dates: start: 20101115, end: 20101227

REACTIONS (4)
  - CALCIPHYLAXIS [None]
  - CYTOMEGALOVIRUS INFECTION [None]
  - CEREBRAL INFARCTION [None]
  - WHITE BLOOD CELL COUNT DECREASED [None]
